FAERS Safety Report 8202735-1 (Version None)
Quarter: 2012Q1

REPORT INFORMATION
  Report Type: 
  Country: None (occurrence: None)
  Receive Date: 20120227
  Receipt Date: 20120106
  Transmission Date: 20120608
  Serious: Yes (Hospitalization)
  Sender: FDA-Public Use
  Company Number: 342663

PATIENT
  Age: 73 Year
  Sex: Male
  Weight: 108.8 kg

DRUGS (3)
  1. LIPITOR [Concomitant]
  2. GLIMEPIRIDE [Concomitant]
  3. VICTOZA [Suspect]
     Indication: TYPE 2 DIABETES MELLITUS
     Dosage: 0.6 MG, QD, SUBCUTANEOUS
     Route: 058
     Dates: start: 20111215, end: 20111217

REACTIONS (1)
  - PANCREATITIS ACUTE [None]
